FAERS Safety Report 9229874 (Version 2)
Quarter: 2013Q2

REPORT INFORMATION
  Report Type: Spontaneous
  Country: JP (occurrence: JP)
  Receive Date: 20130415
  Receipt Date: 20130624
  Transmission Date: 20140414
  Serious: Yes (Hospitalization)
  Sender: FDA-Public Use
  Company Number: JP-009507513-1304JPN005790

PATIENT
  Age: 52 Year
  Sex: Male

DRUGS (2)
  1. PEGINTRON [Suspect]
     Indication: VIRAL HEPATITIS CARRIER
     Dosage: DALY DOSE UNKNOWN
     Route: 058
     Dates: start: 201106, end: 201201
  2. REBETOL [Suspect]
     Indication: VIRAL HEPATITIS CARRIER
     Dosage: DAILY DOSE UNKNOWN
     Route: 048
     Dates: start: 201106, end: 201201

REACTIONS (1)
  - Dermatomyositis [Recovered/Resolved]
